FAERS Safety Report 5714935-0 (Version None)
Quarter: 2008Q2

REPORT INFORMATION
  Report Type: 
  Country: None (occurrence: None)
  Receive Date: 20080423
  Receipt Date: 20080417
  Transmission Date: 20081010
  Serious: Yes (Other)
  Sender: FDA-Public Use
  Company Number: US-ASTRAZENECA-2006UW19212

PATIENT
  Age: 70 Year
  Sex: Female

DRUGS (5)
  1. ARIMIDEX [Suspect]
     Indication: BREAST CANCER
     Dosage: STOPPED FOR 4 DAYS
     Route: 048
  2. ARIMIDEX [Suspect]
     Route: 048
  3. ARIMIDEX [Suspect]
     Route: 048
  4. VITAMIN A [Concomitant]
  5. ACIDOPHOLOUS [Concomitant]

REACTIONS (14)
  - ABNORMAL SENSATION IN EYE [None]
  - ARTHRALGIA [None]
  - EYE PAIN [None]
  - FATIGUE [None]
  - HYPERTENSION [None]
  - KERATOCONJUNCTIVITIS SICCA [None]
  - METASTASES TO CENTRAL NERVOUS SYSTEM [None]
  - MIGRAINE WITH AURA [None]
  - MYALGIA [None]
  - NERVOUS SYSTEM DISORDER [None]
  - PAIN [None]
  - PRE-EXISTING CONDITION IMPROVED [None]
  - VISUAL DISTURBANCE [None]
  - VISUAL FIELD DEFECT [None]
